FAERS Safety Report 6577632-8 (Version None)
Quarter: 2010Q1

REPORT INFORMATION
  Report Type: 
  Country: None (occurrence: None)
  Receive Date: 20100211
  Receipt Date: 20100201
  Transmission Date: 20100710
  Serious: Yes (Other)
  Sender: FDA-Public Use
  Company Number: PHHY2009CA46159

PATIENT
  Sex: Female
  Weight: 63.039 kg

DRUGS (5)
  1. ACLASTA [Suspect]
     Indication: OSTEOPOROSIS
     Dosage: 5 MG, UNK
     Dates: start: 20091021
  2. CALCIUM [Concomitant]
  3. VITAMIN D [Concomitant]
  4. TRAZODONE [Concomitant]
  5. CLONAZEPAM [Concomitant]

REACTIONS (15)
  - ASTHENIA [None]
  - BLOOD PRESSURE DECREASED [None]
  - FALL [None]
  - FATIGUE [None]
  - HYPERHIDROSIS [None]
  - LOSS OF CONSCIOUSNESS [None]
  - MALAISE [None]
  - MUSCLE SPASMS [None]
  - NAUSEA [None]
  - OXYGEN SATURATION DECREASED [None]
  - PALLOR [None]
  - POOR QUALITY SLEEP [None]
  - THROAT IRRITATION [None]
  - URINARY INCONTINENCE [None]
  - VOMITING [None]
